FAERS Safety Report 22540969 (Version 1)
Quarter: 2023Q2

REPORT INFORMATION
  Report Type: Spontaneous
  Country: US (occurrence: None)
  Receive Date: 20230608
  Receipt Date: 20230608
  Transmission Date: 20230722
  Serious: Yes (Death)
  Sender: FDA-Public Use
  Company Number: None

PATIENT
  Age: 55 Year
  Sex: Female

DRUGS (4)
  1. HEPARIN [Suspect]
     Active Substance: HEPARIN SODIUM
  2. ASPIRIN [Suspect]
     Active Substance: ASPIRIN
  3. ALTEPLASE [Suspect]
     Active Substance: ALTEPLASE
  4. NALOXONE [Suspect]
     Active Substance: NALOXONE

REACTIONS (11)
  - Mental status changes [None]
  - Brain oedema [None]
  - Angioplasty [None]
  - Coronary arterial stent insertion [None]
  - Cerebrovascular accident [None]
  - Cerebral infarction [None]
  - Cerebral mass effect [None]
  - Catheter site haemorrhage [None]
  - Cerebellar haematoma [None]
  - Pupil fixed [None]
  - Medical device site haemorrhage [None]

NARRATIVE: CASE EVENT DATE: 20230406
